FAERS Safety Report 22333070 (Version 2)
Quarter: 2023Q2

REPORT INFORMATION
  Report Type: Spontaneous
  Country: DE (occurrence: None)
  Receive Date: 20230517
  Receipt Date: 20230529
  Transmission Date: 20230722
  Serious: Yes (Other)
  Sender: FDA-Public Use
  Company Number: 2023A111272

PATIENT
  Age: 49 Year
  Sex: Female

DRUGS (4)
  1. ANIFROLUMAB [Suspect]
     Active Substance: ANIFROLUMAB
     Route: 042
     Dates: start: 202210
  2. PREDNISOLONE [Concomitant]
     Active Substance: PREDNISOLONE
  3. MYCOPHENOLATE MOFETIL [Concomitant]
     Active Substance: MYCOPHENOLATE MOFETIL
     Dates: start: 202012
  4. HYDROXYCHLOROQUINE [Concomitant]
     Active Substance: HYDROXYCHLOROQUINE

REACTIONS (4)
  - Pyelonephritis [Unknown]
  - Aphthous ulcer [Unknown]
  - Pain in extremity [Unknown]
  - COVID-19 [Unknown]
